FAERS Safety Report 6826011-4 (Version None)
Quarter: 2010Q3

REPORT INFORMATION
  Report Type: 
  Country: None (occurrence: None)
  Receive Date: 20100709
  Receipt Date: 20100629
  Transmission Date: 20110219
  Serious: Yes (Hospitalization, Other)
  Sender: FDA-Public Use
  Company Number: US-BAXTER-2010BH017302

PATIENT
  Age: 34 Year
  Sex: Female

DRUGS (3)
  1. GAMMAGARD LIQUID [Suspect]
     Indication: PRODUCT USED FOR UNKNOWN INDICATION
     Route: 065
     Dates: start: 20100504, end: 20100505
  2. GAMMAGARD LIQUID [Suspect]
     Route: 065
     Dates: start: 20100509, end: 20100509
  3. GAMMAGARD LIQUID [Suspect]
     Route: 065
     Dates: start: 20100622, end: 20100626

REACTIONS (5)
  - ASTHENIA [None]
  - DYSARTHRIA [None]
  - HEADACHE [None]
  - MENINGITIS [None]
  - NAUSEA [None]
